FAERS Safety Report 6959237-X (Version None)
Quarter: 2010Q3

REPORT INFORMATION
  Report Type: 
  Country: None (occurrence: None)
  Receive Date: 20100831
  Receipt Date: 20100820
  Transmission Date: 20110219
  Serious: Yes (Other)
  Sender: FDA-Public Use
  Company Number: FR-PFIZER INC-2010072846

PATIENT
  Age: 44 Year
  Sex: Male
  Weight: 100 kg

DRUGS (4)
  1. CHAMPIX [Suspect]
     Indication: SMOKING CESSATION THERAPY
     Dosage: UNK
     Dates: start: 20100402, end: 20100101
  2. CHAMPIX [Suspect]
     Dosage: 1 MG, 2X/DAY
     Dates: start: 20100101, end: 20100608
  3. ALCOHOL [Suspect]
  4. SPASMINE [Concomitant]
     Dosage: 100 MG/ 2 TABLETS, 2X/DAY
     Route: 048
     Dates: start: 20100608

REACTIONS (7)
  - ALCOHOL POISONING [None]
  - BRIEF PSYCHOTIC DISORDER WITH MARKED STRESSORS [None]
  - CONFUSIONAL STATE [None]
  - DELUSION OF REFERENCE [None]
  - MEMORY IMPAIRMENT [None]
  - PERSECUTORY DELUSION [None]
  - SPEECH DISORDER [None]
